FAERS Safety Report 5629373-9 (Version None)
Quarter: 2008Q1

REPORT INFORMATION
  Report Type: 
  Country: None (occurrence: None)
  Receive Date: 20080213
  Receipt Date: 20080213
  Transmission Date: 20080703
  Serious: Yes (Hospitalization, Disabling, Other)
  Sender: FDA-Public Use
  Company Number: None

PATIENT
  Age: 74 Year
  Sex: Female
  Weight: 72.5755 kg

DRUGS (2)
  1. ACTOS [Suspect]
     Indication: TYPE 2 DIABETES MELLITUS
     Dosage: 15MG TO 30MG  1 DAILY  (1/2 TAB AFTER ALERT)
     Dates: start: 20041202, end: 20071230
  2. AVANDIA [Suspect]

REACTIONS (4)
  - ANKLE FRACTURE [None]
  - CONTUSION [None]
  - FALL [None]
  - JOINT SWELLING [None]
